FAERS Safety Report 4348299-4 (Version None)
Quarter: 2004Q2

REPORT INFORMATION
  Report Type: 
  Country: None (occurrence: None)
  Receive Date: 20040422
  Receipt Date: 20040414
  Transmission Date: 20050107
  Serious: Yes (Life-Threatening, Hospitalization)
  Sender: FDA-Public Use
  Company Number: 200410255BNE

PATIENT
  Age: 79 Year
  Sex: Male

DRUGS (8)
  1. ASPIRIN [Suspect]
     Indication: CORONARY ARTERY DISEASE
     Dosage: 300 MG, TOTAL DAILY, ORAL
     Route: 048
     Dates: start: 20011210, end: 20040329
  2. VIOXX [Suspect]
     Indication: GOUT
     Dosage: 25 MG, TOTAL DAILY, ORAL
     Route: 048
     Dates: start: 20040311, end: 20040329
  3. FUROSEMIDE [Concomitant]
  4. THYROXIN [Concomitant]
  5. LISINOPRIL [Concomitant]
  6. ISOSORBIDE MONONITRATE [Concomitant]
  7. GLICLAZIDE [Concomitant]
  8. METFORMIN HCL [Concomitant]

REACTIONS (3)
  - DIZZINESS [None]
  - GASTROINTESTINAL HAEMORRHAGE [None]
  - GOUT [None]
